FAERS Safety Report 8176933-X (Version None)
Quarter: 2012Q1

REPORT INFORMATION
  Report Type: 
  Country: None (occurrence: None)
  Receive Date: 20120301
  Receipt Date: 20120221
  Transmission Date: 20120608
  Serious: Yes (Other)
  Sender: FDA-Public Use
  Company Number: US-JNJFOC-20120210839

PATIENT
  Sex: Male
  Weight: 70.31 kg

DRUGS (4)
  1. LUTEIN [Concomitant]
     Indication: NUTRITIONAL SUPPORT
     Route: 048
     Dates: start: 20100101
  2. XARELTO [Suspect]
     Indication: ATRIAL FIBRILLATION
     Route: 048
     Dates: start: 20120101
  3. METOPROLOL SUCCINATE [Concomitant]
     Indication: CARDIAC DISORDER
     Route: 048
     Dates: start: 20090101
  4. VITAMIN D [Concomitant]
     Indication: NUTRITIONAL SUPPORT
     Route: 048
     Dates: start: 20100101

REACTIONS (4)
  - ARTHRALGIA [None]
  - NECK PAIN [None]
  - BACK PAIN [None]
  - MUSCLE SPASMS [None]
